FAERS Safety Report 5015963-3 (Version None)
Quarter: 2006Q2

REPORT INFORMATION
  Report Type: 
  Country: None (occurrence: None)
  Receive Date: 20060531
  Receipt Date: 20060531
  Transmission Date: 20061013
  Serious: Yes (Hospitalization)
  Sender: FDA-Public Use
  Company Number: None

PATIENT
  Sex: Female
  Weight: 89.5 kg

DRUGS (2)
  1. CISPLATIN [Suspect]
     Indication: URETERIC CANCER METASTATIC
     Dosage: 70 MG/M2  DAY 2 IV
     Route: 042
     Dates: start: 20040316, end: 20040413
  2. GEMCITABINE [Suspect]
     Indication: URETERIC CANCER METASTATIC
     Dosage: 1000 MG/M2  DAYS 1, 8 + 15   IV
     Route: 042
     Dates: start: 20040315, end: 20040420

REACTIONS (7)
  - CHEST PAIN [None]
  - CHOLANGITIS [None]
  - CONTRAST MEDIA REACTION [None]
  - DYSPNOEA [None]
  - HYPERTENSION [None]
  - PRODUCTIVE COUGH [None]
  - RENAL FAILURE ACUTE [None]
